FAERS Safety Report 9302633 (Version 1)
Quarter: 2013Q2

REPORT INFORMATION
  Report Type: Spontaneous
  Country: US (occurrence: US)
  Receive Date: 20130522
  Receipt Date: 20130522
  Transmission Date: 20140414
  Serious: No
  Sender: FDA-Public Use
  Company Number: US-009507513-1305USA006197

PATIENT
  Sex: Female

DRUGS (1)
  1. NASONEX [Suspect]
     Indication: SINUS DISORDER
     Dosage: TWO SPRAYS IN EACH NOSTRIL DAILY
     Route: 045
     Dates: start: 2007

REACTIONS (3)
  - Sinus disorder [Recovering/Resolving]
  - Drug dose omission [Unknown]
  - Product quality issue [Unknown]
